FAERS Safety Report 13296844 (Version 1)
Quarter: 2017Q1

REPORT INFORMATION
  Report Type: Spontaneous
  Country: US (occurrence: US)
  Receive Date: 20170306
  Receipt Date: 20170306
  Transmission Date: 20170428
  Serious: No
  Sender: FDA-Public Use
  Company Number: US-ASTRAZENECA-2017SE21322

PATIENT
  Sex: Male

DRUGS (1)
  1. ZURAMPIC [Suspect]
     Active Substance: LESINURAD
     Route: 048

REACTIONS (4)
  - Fatigue [Unknown]
  - Cold sweat [Unknown]
  - Drug intolerance [Unknown]
  - Headache [Unknown]
